FAERS Safety Report 8194090-0 (Version None)
Quarter: 2012Q1

REPORT INFORMATION
  Report Type: 
  Country: None (occurrence: None)
  Receive Date: 20120308
  Receipt Date: 20120228
  Transmission Date: 20120608
  Serious: Yes (Other)
  Sender: FDA-Public Use
  Company Number: US-ASTRAZENECA-2011SE70562

PATIENT
  Age: 73 Year
  Sex: Male
  Weight: 78 kg

DRUGS (18)
  1. METHADON HCL TAB [Concomitant]
     Route: 048
  2. ZETIA [Concomitant]
     Route: 048
  3. WARFARIN SODIUM [Concomitant]
     Route: 048
  4. ZOLOFT [Concomitant]
     Route: 048
  5. ADVAIR DISKUS 100/50 [Concomitant]
     Dosage: 250/50 ONE PUFF, BID
     Route: 048
  6. NEXIUM [Suspect]
     Indication: GASTROOESOPHAGEAL REFLUX DISEASE
     Route: 048
     Dates: start: 20050418
  7. VENTOLIN HFA [Concomitant]
  8. JANUVIA [Concomitant]
     Route: 048
  9. LAMISIL [Concomitant]
     Dosage: BID
     Route: 061
  10. PLAVIX [Concomitant]
     Route: 048
  11. CRESTOR [Suspect]
     Indication: HYPERLIPIDAEMIA
     Route: 048
     Dates: start: 20101001
  12. VERAPAMIL [Concomitant]
     Route: 048
  13. METFORMIN HYDROCHLORIDE [Concomitant]
     Route: 048
  14. HYDROCORTISONE [Concomitant]
     Dosage: APPLY TID
     Route: 061
  15. VERAPAMIL [Concomitant]
     Route: 048
  16. GLYCOLAX [Concomitant]
     Dosage: 17 GRAMS 8 OUNCES OF WATER DAILY
  17. LIPITOR [Concomitant]
     Route: 048
  18. SPIRIVA [Concomitant]
     Dosage: 1 CAPSULE INHALED DAILY
     Route: 055

REACTIONS (20)
  - LARYNGEAL CANCER [None]
  - LIVER FUNCTION TEST ABNORMAL [None]
  - INCISIONAL HERNIA [None]
  - PEPTIC ULCER [None]
  - BENIGN PROSTATIC HYPERPLASIA [None]
  - CAROTID ARTERY STENOSIS [None]
  - PERIPHERAL VASCULAR DISORDER [None]
  - LUMBAR RADICULOPATHY [None]
  - DEPRESSION [None]
  - CARPAL TUNNEL SYNDROME [None]
  - LARYNGEAL MASS [None]
  - BREATH SOUNDS ABNORMAL [None]
  - HYPOGONADISM [None]
  - HYPERLIPIDAEMIA [None]
  - ANXIETY [None]
  - HYPERTROPHIC CARDIOMYOPATHY [None]
  - NEOPLASM MALIGNANT [None]
  - CHRONIC OBSTRUCTIVE PULMONARY DISEASE [None]
  - HYPERTENSION [None]
  - TYPE 2 DIABETES MELLITUS [None]
